FAERS Safety Report 10229370 (Version 2)
Quarter: 2014Q2

REPORT INFORMATION
  Report Type: Spontaneous
  Country: IT (occurrence: IT)
  Receive Date: 20140611
  Receipt Date: 20140612
  Transmission Date: 20141212
  Serious: Yes (Death)
  Sender: FDA-Public Use
  Company Number: IT-ROCHE-1416514

PATIENT
  Age: 72 Year
  Sex: Female

DRUGS (2)
  1. ROCEFIN [Suspect]
     Indication: ASTHMA
     Route: 065
     Dates: start: 201402
  2. ONBREZ [Concomitant]
     Indication: ASTHMA

REACTIONS (1)
  - Anaphylactic shock [Fatal]
